FAERS Safety Report 4932258-4 (Version None)
Quarter: 2006Q1

REPORT INFORMATION
  Report Type: 
  Country: None (occurrence: None)
  Receive Date: 20060228
  Receipt Date: 20060217
  Transmission Date: 20060701
  Serious: Yes (Hospitalization)
  Sender: FDA-Public Use
  Company Number: 2006025430

PATIENT
  Age: 58 Year
  Sex: Male

DRUGS (6)
  1. ZOLOFT [Suspect]
     Indication: ILL-DEFINED DISORDER
     Dosage: 50 MG (50 MG, 1 IN 1 D), ORAL
     Route: 048
     Dates: start: 20051231, end: 20060106
  2. CLONAZEPAM [Suspect]
     Indication: ILL-DEFINED DISORDER
     Dosage: 2 MG (2 MG, 1 IN 1 D), ORAL
     Route: 048
     Dates: start: 20051222
  3. AMOXICILLIN TRIHYDRATE [Suspect]
     Indication: ILL-DEFINED DISORDER
     Dosage: 500 MG, ORAL
     Route: 048
     Dates: start: 20051221, end: 20060111
  4. NEXIUM [Suspect]
     Indication: ILL-DEFINED DISORDER
     Dosage: 40 MG (1 D), ORAL
     Route: 048
     Dates: start: 20051214, end: 20060113
  5. STABLON (TIANEPTINE) [Suspect]
     Indication: ILL-DEFINED DISORDER
     Dosage: 37.5 MG (12.5 MG, 1 D), ORAL
     Route: 048
     Dates: start: 20060106, end: 20060114
  6. LASIX [Suspect]
     Indication: ILL-DEFINED DISORDER
     Dosage: 1 GRAM (500 MG, 1 D), ORAL
     Route: 048
     Dates: start: 20051213

REACTIONS (3)
  - AGRANULOCYTOSIS [None]
  - BONE MARROW FAILURE [None]
  - DRUG TOXICITY [None]
